FAERS Safety Report 4895517-X (Version None)
Quarter: 2006Q1

REPORT INFORMATION
  Report Type: 
  Country: None (occurrence: None)
  Receive Date: 20060125
  Receipt Date: 20060118
  Transmission Date: 20060701
  Serious: Yes (Hospitalization, Other)
  Sender: FDA-Public Use
  Company Number: CHNY2005AU02307

PATIENT
  Age: 27 Year
  Sex: Male
  Weight: 46 kg

DRUGS (1)
  1. NICOTINE [Suspect]
     Indication: SMOKING CESSATION THERAPY
     Dosage: 21 MG, QD, TRANSDERMAL
     Route: 062
     Dates: start: 20051109, end: 20051113

REACTIONS (9)
  - ABNORMAL BEHAVIOUR [None]
  - CONFUSIONAL STATE [None]
  - DISTURBANCE IN ATTENTION [None]
  - FEAR [None]
  - HALLUCINATION, VISUAL [None]
  - HYPERSOMNIA [None]
  - INSOMNIA [None]
  - PSYCHOTIC DISORDER [None]
  - SOMNOLENCE [None]
